FAERS Safety Report 11727787 (Version 1)
Quarter: 2015Q4

REPORT INFORMATION
  Report Type: Spontaneous
  Country: BR (occurrence: BR)
  Receive Date: 20151112
  Receipt Date: 20151112
  Transmission Date: 20160304
  Serious: Yes (Other)
  Sender: FDA-Public Use
  Company Number: BR-VALIDUS PHARMACEUTICALS LLC-BR-2015VAL000700

PATIENT

DRUGS (2)
  1. PARLODEL [Suspect]
     Active Substance: BROMOCRIPTINE MESYLATE
     Indication: BLOOD PROLACTIN INCREASED
     Dosage: 1 DF (PARLODEL 5 MG), QD
     Route: 048
     Dates: start: 1994
  2. PARLODEL [Suspect]
     Active Substance: BROMOCRIPTINE MESYLATE
     Dosage: 1 DF (PARLODEL 2.5 MG), QD
     Route: 048

REACTIONS (2)
  - Blood prolactin increased [Not Recovered/Not Resolved]
  - Drug dependence [Unknown]
